FAERS Safety Report 5637486-0 (Version None)
Quarter: 2008Q1

REPORT INFORMATION
  Report Type: 
  Country: None (occurrence: None)
  Receive Date: 20080225
  Receipt Date: 20080213
  Transmission Date: 20080703
  Serious: No
  Sender: FDA-Public Use
  Company Number: JP-PFIZER INC-2008011329

PATIENT
  Age: 19 Year
  Sex: Female

DRUGS (6)
  1. GABAPEN [Suspect]
     Indication: EPILEPSY
     Route: 048
  2. SELENICA-R [Concomitant]
     Route: 048
  3. EPILEO PETIT MAL [Concomitant]
     Route: 048
  4. ALEVIATIN [Concomitant]
     Route: 048
  5. DIAPP [Concomitant]
     Route: 054
  6. GLYCERIN [Concomitant]
     Route: 054

REACTIONS (1)
  - SOMNOLENCE [None]
